FAERS Safety Report 16169364 (Version 3)
Quarter: 2019Q2

REPORT INFORMATION
  Report Type: Spontaneous
  Country: PL (occurrence: PL)
  Receive Date: 20190408
  Receipt Date: 20190530
  Transmission Date: 20190711
  Serious: Yes (Death, Hospitalization, Other)
  Sender: FDA-Public Use
  Company Number: PL-ROCHE-2295397

PATIENT
  Age: 72 Year
  Sex: Male
  Weight: 72 kg

DRUGS (3)
  1. AVEDOL [Concomitant]
     Active Substance: CARVEDILOL
     Route: 065
  2. RIBAVIRIN. [Suspect]
     Active Substance: RIBAVIRIN
     Indication: CHRONIC HEPATITIS C
     Route: 048
     Dates: start: 20180810, end: 20180817
  3. EPCLUSA [Suspect]
     Active Substance: SOFOSBUVIR\VELPATASVIR
     Indication: CHRONIC HEPATITIS C
     Dosage: LAST DOSE ON 01/NOV/2018
     Route: 048
     Dates: start: 20180810

REACTIONS (9)
  - Hepatic failure [Recovered/Resolved]
  - Anaemia [Unknown]
  - Oedema peripheral [Unknown]
  - Ascites [Unknown]
  - Varices oesophageal [Unknown]
  - Inflammatory marker increased [Unknown]
  - Peritonitis bacterial [Unknown]
  - Blood bilirubin increased [Recovered/Resolved]
  - Death [Fatal]

NARRATIVE: CASE EVENT DATE: 20180815
